FAERS Safety Report 4263899-8 (Version None)
Quarter: 2004Q1

REPORT INFORMATION
  Report Type: 
  Country: None (occurrence: None)
  Receive Date: 20040102
  Receipt Date: 20031219
  Transmission Date: 20041129
  Serious: Yes (Death, Hospitalization)
  Sender: FDA-Public Use
  Company Number: DE_031212613

PATIENT
  Age: 79 Year
  Sex: Female
  Weight: 53 kg

DRUGS (6)
  1. EVISTA [Suspect]
     Indication: OSTEOPOROSIS
     Dates: start: 20030103
  2. RINGER [Concomitant]
  3. HAES (HETASTARCH) [Concomitant]
  4. ACETYLCYSTEINE [Concomitant]
  5. ACETYLCYSTEINE [Concomitant]
  6. ULCOGANT (SUCRALFATE) [Concomitant]

REACTIONS (3)
  - CEREBROVASCULAR ACCIDENT [None]
  - HAEMORRHAGE INTRACRANIAL [None]
  - PYREXIA [None]
